FAERS Safety Report 5670690-4 (Version None)
Quarter: 2008Q1

REPORT INFORMATION
  Report Type: 
  Country: None (occurrence: None)
  Receive Date: 20080313
  Receipt Date: 20080303
  Transmission Date: 20080703
  Serious: Yes (Hospitalization)
  Sender: FDA-Public Use
  Company Number: GXKR2008US02241

PATIENT
  Age: 52 Year
  Sex: Male

DRUGS (6)
  1. QUETIAPINE (NGX)(QUETIAPINE) UNKNOWN [Suspect]
     Indication: INSOMNIA
     Dosage: 50 MG, QD, 100 MG, QD, 200 MG, QD, 1000 MG, QD, 25 MG, QD
  2. QUETIAPINE (NGX)(QUETIAPINE) UNKNOWN [Suspect]
     Indication: INSOMNIA
     Dosage: 50 MG, QD, 100 MG, QD, 200 MG, QD, 1000 MG, QD, 25 MG, QD
  3. QUETIAPINE (NGX)(QUETIAPINE) UNKNOWN [Suspect]
     Indication: INSOMNIA
     Dosage: 50 MG, QD, 100 MG, QD, 200 MG, QD, 1000 MG, QD, 25 MG, QD
  4. MIRTAZAPINE [Suspect]
     Dosage: 30 MG, QD
  5. METHYLPHENIDATE HCL [Concomitant]
  6. CLONAZEPAM [Concomitant]

REACTIONS (7)
  - ANXIETY [None]
  - CONFUSIONAL STATE [None]
  - DRUG INTERACTION [None]
  - FALL [None]
  - HYPERSOMNIA [None]
  - INSOMNIA [None]
  - SOMNAMBULISM [None]
